FAERS Safety Report 20061156 (Version 1)
Quarter: 2021Q4

REPORT INFORMATION
  Report Type: Spontaneous
  Country: US (occurrence: US)
  Receive Date: 20211112
  Receipt Date: 20211112
  Transmission Date: 20220303
  Serious: No
  Sender: FDA-Public Use
  Company Number: US-JNJFOC-20211100788

PATIENT
  Age: 55 Year
  Sex: Female

DRUGS (3)
  1. WOMENS ROGAINE UNSCENTED [Suspect]
     Active Substance: MINOXIDIL
     Indication: Alopecia
     Route: 061
     Dates: start: 20210909
  2. ANASTROZOLE [Concomitant]
     Active Substance: ANASTROZOLE
     Indication: Breast cancer
  3. LOPRESSOR [Concomitant]
     Active Substance: METOPROLOL TARTRATE
     Indication: Supraventricular tachycardia

REACTIONS (3)
  - Application site erythema [Recovering/Resolving]
  - Application site pain [Recovered/Resolved]
  - Application site exfoliation [Recovered/Resolved]

NARRATIVE: CASE EVENT DATE: 20211028
